FAERS Safety Report 25348939 (Version 1)
Quarter: 2025Q2

REPORT INFORMATION
  Report Type: Spontaneous
  Country: US (occurrence: US)
  Receive Date: 20250522
  Receipt Date: 20250522
  Transmission Date: 20250716
  Serious: No
  Sender: INCYTE
  Company Number: US-EVENT-002801

PATIENT

DRUGS (1)
  1. JAKAFI [Suspect]
     Active Substance: RUXOLITINIB
     Indication: Chronic graft versus host disease
     Route: 065

REACTIONS (4)
  - Therapeutic product effect incomplete [Unknown]
  - Liver function test increased [Unknown]
  - Stomatitis [Unknown]
  - Therapeutic response unexpected [Recovered/Resolved]
